FAERS Safety Report 7628548-7 (Version None)
Quarter: 2011Q3

REPORT INFORMATION
  Report Type: 
  Country: None (occurrence: None)
  Receive Date: 20110705
  Receipt Date: 20110705
  Transmission Date: 20111222
  Serious: Yes (Hospitalization)
  Sender: FDA-Public Use
  Company Number: QR42765-01

PATIENT
  Age: 56 Year
  Sex: Female
  Weight: 84 kg

DRUGS (8)
  1. EZETEMIDE [Concomitant]
  2. CAPTOPRIL [Concomitant]
  3. BENDROFLUMETHAZIDE [Concomitant]
  4. METFORMIN HCL [Concomitant]
  5. INSULIN [Concomitant]
  6. SYMBICORT [Concomitant]
  7. GAMMAPLEX [Suspect]
     Indication: CHRONIC INFLAMMATORY DEMYELINATING POLYRADICULONEUROPATHY
     Dosage: 30G
     Dates: start: 20100906
  8. GLICLAZIDE [Concomitant]

REACTIONS (7)
  - CHEST DISCOMFORT [None]
  - RASH PRURITIC [None]
  - HEADACHE [None]
  - INFUSION RELATED REACTION [None]
  - CHEST PAIN [None]
  - HYPERTENSION [None]
  - TACHYCARDIA [None]
